FAERS Safety Report 10158223 (Version 2)
Quarter: 2014Q2

REPORT INFORMATION
  Report Type: Spontaneous
  Country: DE (occurrence: DE)
  Receive Date: 20140507
  Receipt Date: 20140507
  Transmission Date: 20141212
  Serious: Yes (Other)
  Sender: FDA-Public Use
  Company Number: PHHY2014DE006990

PATIENT
  Age: 61 Year
  Sex: Male

DRUGS (9)
  1. CICLOSPORIN [Suspect]
     Indication: PROPHYLAXIS AGAINST TRANSPLANT REJECTION
  2. EVEROLIMUS [Suspect]
     Indication: PROPHYLAXIS AGAINST TRANSPLANT REJECTION
  3. MYCOPHENOLATE MOFETIL [Suspect]
     Indication: PROPHYLAXIS AGAINST TRANSPLANT REJECTION
     Dosage: UNK UKN, UNK
  4. TACROLIMUS [Suspect]
     Indication: PROPHYLAXIS AGAINST TRANSPLANT REJECTION
  5. CORTICOSTEROIDS [Suspect]
  6. CETUXIMAB [Concomitant]
     Dosage: 400 MG/M2, UNK
  7. CETUXIMAB [Concomitant]
     Dosage: 250 MG/M2, 6 WEEKLY DOSES
  8. CETUXIMAB [Concomitant]
     Dosage: 500 MG/M2, 17 DOSES EVERY OTHER WEEK
  9. ACITRETIN [Concomitant]
     Dosage: 25 MG, QD

REACTIONS (4)
  - Squamous cell carcinoma [Unknown]
  - Malignant neoplasm progression [Unknown]
  - Metastatic squamous cell carcinoma [Unknown]
  - Impaired healing [Recovering/Resolving]
